FAERS Safety Report 4854551-6 (Version None)
Quarter: 2005Q4

REPORT INFORMATION
  Report Type: 
  Country: None (occurrence: None)
  Receive Date: 20051215
  Receipt Date: 20051202
  Transmission Date: 20060501
  Serious: Yes (Other)
  Sender: FDA-Public Use
  Company Number: BE-ROCHE-427265

PATIENT
  Age: 48 Year
  Sex: Male
  Weight: 86 kg

DRUGS (4)
  1. FUZEON [Suspect]
     Route: 058
     Dates: start: 20041015
  2. DIDANOSINE [Concomitant]
  3. TENOFOVIR [Concomitant]
  4. TIPRANAVIR [Concomitant]

REACTIONS (1)
  - ARTHRALGIA [None]
